FAERS Safety Report 4373181-6 (Version None)
Quarter: 2004Q2

REPORT INFORMATION
  Report Type: 
  Country: None (occurrence: None)
  Receive Date: 20040608
  Receipt Date: 20040521
  Transmission Date: 20050107
  Serious: Yes (Hospitalization)
  Sender: FDA-Public Use
  Company Number: AU-ROCHE-368469

PATIENT
  Age: 62 Year
  Sex: Female

DRUGS (9)
  1. MYCOPHENOLATE MOFETIL [Suspect]
     Route: 065
     Dates: start: 20040512, end: 20040522
  2. MYCOPHENOLATE MOFETIL [Suspect]
     Route: 065
     Dates: start: 20040523
  3. CYCLOSPORINE [Suspect]
     Route: 065
     Dates: start: 20040512, end: 20040512
  4. CYCLOSPORINE [Suspect]
     Route: 065
     Dates: start: 20040513, end: 20040513
  5. CYCLOSPORINE [Suspect]
     Dosage: 275MG IN THE MORNING AND 350MG IN THE EVENING
     Route: 065
     Dates: start: 20040514, end: 20040514
  6. CYCLOSPORINE [Suspect]
     Route: 065
     Dates: start: 20040515
  7. METHYLPREDNISOLONE [Suspect]
     Route: 065
     Dates: start: 20040512, end: 20040513
  8. PREDNISOLONE [Suspect]
     Route: 065
     Dates: start: 20040514
  9. COTRIM [Concomitant]
     Dates: start: 20040513

REACTIONS (5)
  - HAEMATOMA [None]
  - POSTOPERATIVE WOUND COMPLICATION [None]
  - WOUND DECOMPOSITION [None]
  - WOUND DEHISCENCE [None]
  - WOUND SECRETION [None]
